FAERS Safety Report 4946094-6 (Version None)
Quarter: 2006Q1

REPORT INFORMATION
  Report Type: 
  Country: None (occurrence: None)
  Receive Date: 20060118
  Receipt Date: 20041118
  Transmission Date: 20060701
  Serious: Yes (Other)
  Sender: FDA-Public Use
  Company Number: BDI-006696

PATIENT
  Age: 50 Year
  Sex: Female
  Weight: 61 kg

DRUGS (2)
  1. PROHANCE [Suspect]
     Indication: ANGIOGRAM
     Dosage: 20 ML ONCE IV
     Route: 042
     Dates: start: 20040706, end: 20040706
  2. PROHANCE [Suspect]
     Indication: INTERMITTENT CLAUDICATION
     Dosage: 20 ML ONCE IV
     Route: 042
     Dates: start: 20040706, end: 20040706

REACTIONS (4)
  - ASTHENIA [None]
  - DIZZINESS [None]
  - THROAT IRRITATION [None]
  - URTICARIA [None]
